FAERS Safety Report 5353064-5 (Version None)
Quarter: 2007Q2

REPORT INFORMATION
  Report Type: 
  Country: None (occurrence: None)
  Receive Date: 20070606
  Receipt Date: 20070521
  Transmission Date: 20071010
  Serious: Yes (Death)
  Sender: FDA-Public Use
  Company Number: CAR-2007-014

PATIENT
  Age: 43 Year
  Sex: Male

DRUGS (1)
  1. SUCRALFATE [Suspect]
     Dosage: 20 ML, INTRAVENOUS
     Route: 042

REACTIONS (3)
  - BLOOD ALUMINIUM INCREASED [None]
  - INCORRECT ROUTE OF DRUG ADMINISTRATION [None]
  - METAL POISONING [None]
